FAERS Safety Report 20616793 (Version 14)
Quarter: 2023Q2

REPORT INFORMATION
  Report Type: Spontaneous
  Country: US (occurrence: US)
  Receive Date: 20220321
  Receipt Date: 20230511
  Transmission Date: 20230721
  Serious: No
  Sender: FDA-Public Use
  Company Number: US-PFIZER INC-202200359979

PATIENT
  Age: 67 Year
  Sex: Female
  Weight: 81.633 kg

DRUGS (4)
  1. IBRANCE [Suspect]
     Active Substance: PALBOCICLIB
     Indication: Breast cancer metastatic
     Dosage: 100 MG, CYCLIC (ONCE A DAY, 3 WKS ON, 1 WK OFF)
     Dates: start: 2021
  2. IBRANCE [Suspect]
     Active Substance: PALBOCICLIB
     Dosage: 100 MG
     Dates: start: 202201
  3. IBRANCE [Suspect]
     Active Substance: PALBOCICLIB
     Dosage: 100 MG, CYCLIC (ONCE A DAY, 3 WKS ON, 1 WK OFF)
  4. LETROZOLE [Concomitant]
     Active Substance: LETROZOLE
     Dosage: UNK
     Dates: start: 202008

REACTIONS (14)
  - Neoplasm progression [Unknown]
  - Therapeutic response unexpected [Unknown]
  - Hair growth abnormal [Unknown]
  - Anxiety [Unknown]
  - Heart rate decreased [Unknown]
  - Oxygen saturation decreased [Unknown]
  - Infection [Unknown]
  - Malaise [Unknown]
  - Full blood count decreased [Unknown]
  - Hypersensitivity [Unknown]
  - Illness [Unknown]
  - Alopecia [Unknown]
  - Hair colour changes [Unknown]
  - Brain fog [Unknown]
